FAERS Safety Report 8539532-3 (Version None)
Quarter: 2012Q3

REPORT INFORMATION
  Report Type: 
  Country: None (occurrence: None)
  Receive Date: 20120726
  Receipt Date: 20120716
  Transmission Date: 20120928
  Serious: Yes (Hospitalization)
  Sender: FDA-Public Use
  Company Number: US-BAYER-2012-072136

PATIENT
  Age: 39 Year
  Sex: Female
  Weight: 113.4 kg

DRUGS (4)
  1. YAZ [Suspect]
     Indication: CONTRACEPTION
  2. PREDNISONE [Concomitant]
     Dosage: 20 MG, TID EVERY DAY FOR 5 DAYS
     Route: 048
  3. NORCO [Concomitant]
     Indication: PAIN
     Dosage: 5 MG, 1 TO 2 EVERY 6 HOURS
     Route: 048
  4. DROSPIRENONE AND ETHINYL ESTRADIOL [Suspect]

REACTIONS (1)
  - PULMONARY EMBOLISM [None]
